FAERS Safety Report 18894199 (Version 1)
Quarter: 2021Q1

REPORT INFORMATION
  Report Type: Spontaneous
  Country: US (occurrence: US)
  Receive Date: 20210215
  Receipt Date: 20210215
  Transmission Date: 20210420
  Serious: Yes (Hospitalization)
  Sender: FDA-Public Use
  Company Number: US-IPSEN BIOPHARMACEUTICALS, INC.-2021-03689

PATIENT
  Age: 60 Year
  Sex: Male
  Weight: 95.25 kg

DRUGS (23)
  1. ISOSORBIDE. [Concomitant]
     Active Substance: ISOSORBIDE
  2. PANTOPRAZOLE [Concomitant]
     Active Substance: PANTOPRAZOLE
  3. LOMOTIL [Concomitant]
     Active Substance: ATROPINE SULFATE\DIPHENOXYLATE HYDROCHLORIDE
  4. CARVEDILOL. [Concomitant]
     Active Substance: CARVEDILOL
  5. MIRAPEX [Concomitant]
     Active Substance: PRAMIPEXOLE DIHYDROCHLORIDE
  6. DOXYCYCLINE. [Concomitant]
     Active Substance: DOXYCYCLINE
  7. SOMATULINE DEPOT [Suspect]
     Active Substance: LANREOTIDE ACETATE
     Indication: PANCREATIC NEUROENDOCRINE TUMOUR
     Dosage: DOSE NOT REPORTED
     Route: 065
     Dates: start: 201806
  8. TYLENOL [Concomitant]
     Active Substance: ACETAMINOPHEN
  9. BRILINTA [Concomitant]
     Active Substance: TICAGRELOR
  10. IMODIUM [Concomitant]
     Active Substance: LOPERAMIDE HYDROCHLORIDE
  11. BASAGLAR [Concomitant]
     Active Substance: INSULIN GLARGINE
  12. XANAX [Concomitant]
     Active Substance: ALPRAZOLAM
  13. CEPHALEXIN. [Concomitant]
     Active Substance: CEPHALEXIN
  14. CREON [Concomitant]
     Active Substance: PANCRELIPASE AMYLASE\PANCRELIPASE LIPASE\PANCRELIPASE PROTEASE
  15. CRESTOR [Concomitant]
     Active Substance: ROSUVASTATIN CALCIUM
  16. ASPIRIN. [Concomitant]
     Active Substance: ASPIRIN
  17. TRAMADOL. [Concomitant]
     Active Substance: TRAMADOL
  18. VITAMIN D3 [Concomitant]
     Active Substance: CHOLECALCIFEROL
  19. L?LYSINE [Concomitant]
     Active Substance: LYSINE
  20. HUMALOG [Concomitant]
     Active Substance: INSULIN LISPRO
  21. RANOLAZINE. [Concomitant]
     Active Substance: RANOLAZINE
  22. FLEXERIL [Concomitant]
     Active Substance: CYCLOBENZAPRINE HYDROCHLORIDE
  23. GABAPENTIN. [Concomitant]
     Active Substance: GABAPENTIN

REACTIONS (1)
  - Myocardial infarction [Unknown]

NARRATIVE: CASE EVENT DATE: 201912
